FAERS Safety Report 12286199 (Version 6)
Quarter: 2019Q2

REPORT INFORMATION
  Report Type: Report from Study
  Country: GB (occurrence: GB)
  Receive Date: 20160420
  Receipt Date: 20190418
  Transmission Date: 20190711
  Serious: Yes (Other)
  Sender: FDA-Public Use
  Company Number: GB-ROCHE-1743292

PATIENT
  Age: 68 Year
  Sex: Female

DRUGS (7)
  1. IDELALISIB [Suspect]
     Active Substance: IDELALISIB
     Dosage: 6 CYCLE FOR 28 DAYS
     Route: 048
  2. BUDESONIDE. [Concomitant]
     Active Substance: BUDESONIDE
     Route: 065
  3. METHYLPREDNISOLONE. [Concomitant]
     Active Substance: METHYLPREDNISOLONE
     Dosage: DOSE: 1G/M3  3 PULSES (5 D, 5 D, AND 2 D) IN THE 3 MONTHS
     Route: 065
  4. IDELALISIB [Suspect]
     Active Substance: IDELALISIB
     Dosage: 6 CYCLE FOR 28 DAYS
     Route: 048
  5. IDELALISIB [Suspect]
     Active Substance: IDELALISIB
     Indication: B-CELL PROLYMPHOCYTIC LEUKAEMIA
     Dosage: 6 CYCLE FOR 28 DAYS
     Route: 048
  6. IDELALISIB [Suspect]
     Active Substance: IDELALISIB
     Dosage: 6 CYCLE FOR 28 DAYS
     Route: 048
  7. RITUXIMAB. [Suspect]
     Active Substance: RITUXIMAB
     Indication: B-CELL PROLYMPHOCYTIC LEUKAEMIA
     Dosage: GIVEN 2-WEEKLY (CYCLE 1-2) AND THEN 4-WEEKLY (CYCLES 3- 6), EACH CYCLE OF 28 DAYS
     Route: 042

REACTIONS (4)
  - Rash [Unknown]
  - Organising pneumonia [Unknown]
  - Cytomegalovirus colitis [Unknown]
  - Alanine aminotransferase increased [Recovered/Resolved]
